FAERS Safety Report 8542565-4 (Version None)
Quarter: 2012Q3

REPORT INFORMATION
  Report Type: 
  Country: None (occurrence: None)
  Receive Date: 20120726
  Receipt Date: 20120718
  Transmission Date: 20120928
  Serious: Yes (Hospitalization, Other)
  Sender: FDA-Public Use
  Company Number: US-RB-042643-12

PATIENT
  Age: 40 Year
  Sex: Female

DRUGS (6)
  1. XANAX [Concomitant]
     Indication: ANXIETY
     Route: 065
  2. LITHIUM CARBONATE [Concomitant]
     Indication: BIPOLAR DISORDER
  3. SUBOXONE [Suspect]
     Indication: DRUG DEPENDENCE
     Dosage: 24 MG PRESCRIBED, TOOK 8 MG DAILY
     Route: 060
     Dates: start: 20110101, end: 20110101
  4. DEPAKOTE [Concomitant]
     Indication: BIPOLAR DISORDER
  5. NEURONTIN [Concomitant]
     Indication: NEURALGIA
     Route: 065
  6. WELLBUTRIN [Concomitant]
     Indication: DEPRESSION
     Route: 065

REACTIONS (6)
  - FEELING ABNORMAL [None]
  - ABASIA [None]
  - CONVULSION [None]
  - APHASIA [None]
  - HALLUCINATION [None]
  - UNDERDOSE [None]
